FAERS Safety Report 5603952-7 (Version None)
Quarter: 2008Q1

REPORT INFORMATION
  Report Type: 
  Country: None (occurrence: None)
  Receive Date: 20080123
  Receipt Date: 20080114
  Transmission Date: 20080703
  Serious: Yes (Death)
  Sender: FDA-Public Use
  Company Number: B0503077A

PATIENT
  Age: 32 Year
  Sex: Female

DRUGS (3)
  1. BUPROPION HCL [Suspect]
     Dosage: ORAL
     Route: 048
  2. CYCLOBENZAPRINE HCL [Suspect]
     Dosage: ORAL
     Route: 048
  3. BENZODIAZEPINES (FORMULATION UNKNOWN) (BENZODIAZEPINES) [Suspect]
     Dosage: ORAL
     Route: 048

REACTIONS (2)
  - CARDIO-RESPIRATORY ARREST [None]
  - COMPLETED SUICIDE [None]
